FAERS Safety Report 7655048-0 (Version None)
Quarter: 2011Q3

REPORT INFORMATION
  Report Type: 
  Country: None (occurrence: None)
  Receive Date: 20110728
  Receipt Date: 20110715
  Transmission Date: 20111222
  Serious: Yes (Life-Threatening)
  Sender: FDA-Public Use
  Company Number: MSTR-NO-1107S-0195

PATIENT
  Age: 74 Year
  Sex: Male
  Weight: 47.5 kg

DRUGS (8)
  1. MORPHINE HYDROCHLORIDE (MORPHINE HYDROCHLORIDE) [Concomitant]
  2. METASTRON [Suspect]
     Indication: METASTATIC PAIN
     Dosage: NR, SINGLE DOSE, INTRAVENOUS
     Route: 042
     Dates: start: 20090702, end: 20090702
  3. LOXOPROFEN SODIUM HYDRATE (LOXOPROFEN SODIUM) [Concomitant]
  4. CEFTRIAXONE (CTRX) (CEFTRIAXONE) [Concomitant]
  5. FENTANYL [Concomitant]
  6. OXYCODONE HCL [Concomitant]
  7. ZOLEDRONIC ACID HYDRATE (ZOLEDRONIC ACID) [Concomitant]
  8. TAXOL [Concomitant]

REACTIONS (3)
  - LUNG NEOPLASM MALIGNANT [None]
  - NEOPLASM PROGRESSION [None]
  - ANAEMIA [None]
